FAERS Safety Report 25538362 (Version 1)
Quarter: 2025Q3

REPORT INFORMATION
  Report Type: Spontaneous
  Country: US (occurrence: US)
  Receive Date: 20250710
  Receipt Date: 20250710
  Transmission Date: 20251020
  Serious: Yes (Other)
  Sender: MYLAN
  Company Number: US-MYLANLABS-2025M1055288

PATIENT
  Age: 13 Year
  Sex: Female

DRUGS (28)
  1. TRIAMCINOLONE [Suspect]
     Active Substance: TRIAMCINOLONE
     Indication: Psoriasis
  2. TRIAMCINOLONE [Suspect]
     Active Substance: TRIAMCINOLONE
     Route: 061
  3. TRIAMCINOLONE [Suspect]
     Active Substance: TRIAMCINOLONE
     Route: 061
  4. TRIAMCINOLONE [Suspect]
     Active Substance: TRIAMCINOLONE
  5. AMOXICILLIN [Suspect]
     Active Substance: AMOXICILLIN
     Indication: Psoriasis
  6. AMOXICILLIN [Suspect]
     Active Substance: AMOXICILLIN
     Route: 065
  7. AMOXICILLIN [Suspect]
     Active Substance: AMOXICILLIN
     Route: 065
  8. AMOXICILLIN [Suspect]
     Active Substance: AMOXICILLIN
  9. FLUOCINOLONE [Suspect]
     Active Substance: FLUOCINOLONE
     Indication: Psoriasis
  10. FLUOCINOLONE [Suspect]
     Active Substance: FLUOCINOLONE
     Route: 061
  11. FLUOCINOLONE [Suspect]
     Active Substance: FLUOCINOLONE
     Route: 061
  12. FLUOCINOLONE [Suspect]
     Active Substance: FLUOCINOLONE
  13. KETOCONAZOLE [Suspect]
     Active Substance: KETOCONAZOLE
     Indication: Psoriasis
  14. KETOCONAZOLE [Suspect]
     Active Substance: KETOCONAZOLE
     Route: 061
  15. KETOCONAZOLE [Suspect]
     Active Substance: KETOCONAZOLE
     Route: 061
  16. KETOCONAZOLE [Suspect]
     Active Substance: KETOCONAZOLE
  17. CLOBETASOL [Suspect]
     Active Substance: CLOBETASOL
     Indication: Psoriasis
  18. CLOBETASOL [Suspect]
     Active Substance: CLOBETASOL
     Route: 061
  19. CLOBETASOL [Suspect]
     Active Substance: CLOBETASOL
     Route: 061
  20. CLOBETASOL [Suspect]
     Active Substance: CLOBETASOL
  21. CALCIPOTRIENE [Suspect]
     Active Substance: CALCIPOTRIENE
     Indication: Psoriasis
  22. CALCIPOTRIENE [Suspect]
     Active Substance: CALCIPOTRIENE
     Route: 061
  23. CALCIPOTRIENE [Suspect]
     Active Substance: CALCIPOTRIENE
     Route: 061
  24. CALCIPOTRIENE [Suspect]
     Active Substance: CALCIPOTRIENE
  25. ZORYVE [Suspect]
     Active Substance: ROFLUMILAST
     Indication: Psoriasis
  26. ZORYVE [Suspect]
     Active Substance: ROFLUMILAST
     Route: 061
  27. ZORYVE [Suspect]
     Active Substance: ROFLUMILAST
     Route: 061
  28. ZORYVE [Suspect]
     Active Substance: ROFLUMILAST

REACTIONS (2)
  - Drug ineffective [Unknown]
  - Off label use [Unknown]
